FAERS Safety Report 9714438 (Version 1)
Quarter: 2013Q4

REPORT INFORMATION
  Report Type: Spontaneous
  Country: US (occurrence: US)
  Receive Date: 20131126
  Receipt Date: 20131126
  Transmission Date: 20140711
  Serious: No
  Sender: FDA-Public Use
  Company Number: US-BIOGENIDEC-2013BI078557

PATIENT
  Age: 65 Year
  Sex: Male

DRUGS (10)
  1. TECFIDERA [Suspect]
     Indication: MULTIPLE SCLEROSIS
     Route: 048
     Dates: start: 20130720
  2. TECFIDERA [Suspect]
     Indication: MULTIPLE SCLEROSIS
     Route: 048
     Dates: start: 20130802
  3. AMLODIPINE BESYLATE [Concomitant]
  4. TIZANIDINE HCL [Concomitant]
  5. XANAX [Concomitant]
  6. CYMBALTA [Concomitant]
  7. ASPIRIN EC [Concomitant]
  8. FISH OIL [Concomitant]
  9. MULTIVITAMINS [Concomitant]
  10. LIPITOR [Concomitant]

REACTIONS (3)
  - Local swelling [Not Recovered/Not Resolved]
  - Flushing [Not Recovered/Not Resolved]
  - Diarrhoea [Unknown]
